FAERS Safety Report 4684278-5 (Version None)
Quarter: 2005Q2

REPORT INFORMATION
  Report Type: 
  Country: None (occurrence: None)
  Receive Date: 20050531
  Receipt Date: 20041006
  Transmission Date: 20051028
  Serious: Yes (Other)
  Sender: FDA-Public Use
  Company Number: 200417645US

PATIENT
  Age: 70 Year

DRUGS (3)
  1. LOVENOX [Suspect]
  2. RETEPLASE (RETAVASE) [Concomitant]
  3. ASPIRIN [Concomitant]

REACTIONS (1)
  - HAEMORRHAGE [None]
